FAERS Safety Report 6999843-X (Version None)
Quarter: 2010Q3

REPORT INFORMATION
  Report Type: 
  Country: None (occurrence: None)
  Receive Date: 20100920
  Receipt Date: 20100628
  Transmission Date: 20110219
  Serious: Yes (Hospitalization)
  Sender: FDA-Public Use
  Company Number: US-ASTRAZENECA-2007UW12154

PATIENT
  Age: 18808 Day
  Sex: Female
  Weight: 133.4 kg

DRUGS (15)
  1. SEROQUEL [Suspect]
     Indication: SCHIZOAFFECTIVE DISORDER
     Route: 048
     Dates: start: 19970101, end: 20050101
  2. SEROQUEL [Suspect]
     Indication: SCHIZOPHRENIA
     Route: 048
     Dates: start: 19970101, end: 20050101
  3. SEROQUEL [Suspect]
     Indication: BIPOLAR DISORDER
     Route: 048
     Dates: start: 19970101, end: 20050101
  4. SEROQUEL [Suspect]
     Dosage: 300 MG TO 400MG
     Route: 048
     Dates: start: 19990723, end: 20041217
  5. SEROQUEL [Suspect]
     Dosage: 300 MG TO 400MG
     Route: 048
     Dates: start: 19990723, end: 20041217
  6. SEROQUEL [Suspect]
     Dosage: 300 MG TO 400MG
     Route: 048
     Dates: start: 19990723, end: 20041217
  7. SEROQUEL [Suspect]
     Route: 048
     Dates: start: 20011121
  8. SEROQUEL [Suspect]
     Route: 048
     Dates: start: 20011121
  9. SEROQUEL [Suspect]
     Route: 048
     Dates: start: 20011121
  10. RISPERIDONE [Concomitant]
     Indication: SCHIZOPHRENIA
     Route: 048
     Dates: start: 20060101
  11. RISPERIDONE [Concomitant]
     Indication: SCHIZOAFFECTIVE DISORDER
     Route: 048
     Dates: start: 20060101
  12. ROSIGLITAZONE [Concomitant]
     Route: 048
  13. WELLBUTRIN [Concomitant]
  14. HALDOL [Concomitant]
  15. GEODON [Concomitant]

REACTIONS (3)
  - BACK PAIN [None]
  - PEPTIC ULCER [None]
  - TYPE 2 DIABETES MELLITUS [None]
